FAERS Safety Report 5688756-1 (Version None)
Quarter: 2008Q1

REPORT INFORMATION
  Report Type: 
  Country: None (occurrence: None)
  Receive Date: 20080331
  Receipt Date: 20080324
  Transmission Date: 20080703
  Serious: Yes (Other)
  Sender: FDA-Public Use
  Company Number: US-AVENTIS-200811873US

PATIENT
  Sex: Female

DRUGS (2)
  1. CARAC [Suspect]
     Dosage: DOSE: UNK
     Dates: start: 20080112
  2. AMBIEN [Suspect]
     Indication: INSOMNIA
     Dates: start: 20071001

REACTIONS (2)
  - COMA [None]
  - DRUG INTERACTION [None]
